FAERS Safety Report 7685962-1 (Version None)
Quarter: 2011Q3

REPORT INFORMATION
  Report Type: 
  Country: None (occurrence: None)
  Receive Date: 20110811
  Receipt Date: 20110805
  Transmission Date: 20111222
  Serious: Yes (Hospitalization, Other)
  Sender: FDA-Public Use
  Company Number: UKP11000068

PATIENT
  Age: 54 Year
  Sex: Male
  Weight: 89.9029 kg

DRUGS (11)
  1. ASACOL [Suspect]
     Indication: COLITIS ULCERATIVE
     Dosage: 800 MG, 3/DAY, ORAL
     Route: 048
     Dates: start: 20070101, end: 20110527
  2. ASACOL [Suspect]
     Indication: COLITIS ULCERATIVE
     Dosage: 2 G, 1/DAY, RECTAL
     Route: 054
     Dates: start: 20070101, end: 20110527
  3. DESLORATADINE (DESLORATADINE) [Concomitant]
  4. FERROUS FUMARATE [Concomitant]
  5. ATENOLOL [Concomitant]
  6. CODEINE PHOSPHATE AND ACETAMINOPHEN [Concomitant]
  7. ISOSORBIDE MONONITRATE [Concomitant]
  8. SIMVASTATIN [Concomitant]
  9. WARFARIN SODIUM [Concomitant]
  10. CITALOPRAM HYDROBROMIDE [Concomitant]
  11. FEXOFENADINE HCL [Concomitant]

REACTIONS (8)
  - RASH [None]
  - CONTUSION [None]
  - NEUTROPENIC SEPSIS [None]
  - EOSINOPHILIA [None]
  - LEUKOPENIA [None]
  - DRUG INTERACTION [None]
  - ANAEMIA [None]
  - THROMBOCYTOPENIA [None]
